FAERS Safety Report 18649386 (Version 2)
Quarter: 2020Q4

REPORT INFORMATION
  Report Type: Spontaneous
  Country: AU (occurrence: AU)
  Receive Date: 20201222
  Receipt Date: 20201229
  Transmission Date: 20210114
  Serious: Yes (Hospitalization)
  Sender: FDA-Public Use
  Company Number: AU-TASMAN PHARMA, INC.-2020TSM00297

PATIENT
  Sex: Female
  Weight: 44.7 kg

DRUGS (6)
  1. CLOZAPINE. [Suspect]
     Active Substance: CLOZAPINE
     Dosage: 25 MG, 1X/DAY AT NIGHT
     Dates: start: 202012
  2. CLOZAPINE. [Suspect]
     Active Substance: CLOZAPINE
     Dosage: 37.5 MG, 1X/DAY AT NIGHT
     Dates: end: 202012
  3. CLOZAPINE. [Suspect]
     Active Substance: CLOZAPINE
     Dosage: 37.5 MG, 1X/DAY AT NIGHT
     Dates: start: 20200615
  4. UNSPECIFIED MEDICATIONS [Concomitant]
     Active Substance: UNSPECIFIED INGREDIENT
  5. CLOZAPINE. [Suspect]
     Active Substance: CLOZAPINE
     Dosage: 12.5 MG, 1X/DAY IN THE MORNING
     Dates: start: 202012
  6. CLOZAPINE. [Suspect]
     Active Substance: CLOZAPINE
     Dosage: 37.5 MG
     Dates: start: 20200501, end: 20200614

REACTIONS (2)
  - Head injury [Recovering/Resolving]
  - Fall [Recovering/Resolving]

NARRATIVE: CASE EVENT DATE: 20201209
